FAERS Safety Report 9516237 (Version 1)
Quarter: 2013Q3

REPORT INFORMATION
  Report Type: Spontaneous
  Country: GB (occurrence: GB)
  Receive Date: 20130911
  Receipt Date: 20130911
  Transmission Date: 20140515
  Serious: Yes (Other)
  Sender: FDA-Public Use
  Company Number: PHHY2013GB096697

PATIENT
  Age: 49 Year
  Sex: Female
  Weight: 53.97 kg

DRUGS (3)
  1. LAMOTRIGINE [Suspect]
     Indication: DEPRESSION
     Dosage: 25 MG, QD (AT FIRST 25MG PER DAY, THEN TWO TIMES 25MG PER DAY STARTING ON 17TH AUGUST.)
     Route: 048
     Dates: start: 20130803, end: 20130817
  2. LAMOTRIGINE [Suspect]
     Dosage: INCREASED FROM 25MG ONCE DAILY
     Route: 048
     Dates: start: 20130817
  3. LITHIUM CARBONATE [Concomitant]
     Dosage: 600 MG, QD (TAKEN AT NIGHT).

REACTIONS (4)
  - Anger [Recovering/Resolving]
  - Sleep disorder [Recovering/Resolving]
  - Headache [Not Recovered/Not Resolved]
  - Irritability [Recovering/Resolving]
